FAERS Safety Report 14741735 (Version 1)
Quarter: 2018Q2

REPORT INFORMATION
  Report Type: Spontaneous
  Country: ZA (occurrence: ZA)
  Receive Date: 20180410
  Receipt Date: 20180410
  Transmission Date: 20180711
  Serious: Yes (Other)
  Sender: FDA-Public Use
  Company Number: ZA-SA-2018SA094838

PATIENT
  Age: 51 Year
  Sex: Female

DRUGS (3)
  1. SALAZOPYRIN [Suspect]
     Active Substance: SULFASALAZINE
     Route: 065
     Dates: start: 201305, end: 201312
  2. METHOTREXATE. [Suspect]
     Active Substance: METHOTREXATE
     Route: 065
     Dates: start: 201308
  3. ARAVA [Suspect]
     Active Substance: LEFLUNOMIDE
     Route: 048
     Dates: start: 201312, end: 201407

REACTIONS (1)
  - Cachexia [Unknown]

NARRATIVE: CASE EVENT DATE: 2014
